FAERS Safety Report 21720455 (Version 1)
Quarter: 2022Q4

REPORT INFORMATION
  Report Type: Spontaneous
  Country: CH (occurrence: None)
  Receive Date: 20221213
  Receipt Date: 20221213
  Transmission Date: 20230112
  Serious: Yes (Other)
  Sender: FDA-Public Use
  Company Number: CH-ROCHE-3236909

PATIENT
  Sex: Male

DRUGS (13)
  1. RITUXIMAB [Suspect]
     Active Substance: RITUXIMAB
     Indication: Diffuse large B-cell lymphoma
     Dosage: 1 LINE R-CHOP
     Route: 042
     Dates: start: 20210805, end: 20211124
  2. RITUXIMAB [Suspect]
     Active Substance: RITUXIMAB
     Dosage: 2 LINE R-ICE
     Route: 042
     Dates: start: 20220104, end: 20220131
  3. RITUXIMAB [Suspect]
     Active Substance: RITUXIMAB
     Dosage: 3 LINE POLA-BR
     Route: 042
     Dates: start: 20220406, end: 20220427
  4. RITUXIMAB [Suspect]
     Active Substance: RITUXIMAB
     Dosage: 5 LINE RITUXIMAB+REVLIMID +/- BRENTUXIMAB
     Route: 042
     Dates: start: 20221130, end: 20221207
  5. CYCLOPHOSPHAMIDE\DOXORUBICIN\PREDNISONE\VINCRISTINE [Suspect]
     Active Substance: CYCLOPHOSPHAMIDE\DOXORUBICIN\PREDNISONE\VINCRISTINE
     Indication: Diffuse large B-cell lymphoma
     Dosage: 1LINE R-CHOP
     Route: 065
     Dates: start: 20210805, end: 20211124
  6. IFOSFAMIDE [Suspect]
     Active Substance: IFOSFAMIDE
     Indication: Diffuse large B-cell lymphoma
     Dosage: 2 LINE R-ICE
     Route: 065
     Dates: start: 20220104, end: 20220131
  7. CARBOPLATIN [Suspect]
     Active Substance: CARBOPLATIN
     Indication: Diffuse large B-cell lymphoma
     Dosage: 2 LINE R-ICE
     Route: 065
     Dates: start: 20220104, end: 20220131
  8. ETOPOSIDE PHOSPHATE [Suspect]
     Active Substance: ETOPOSIDE PHOSPHATE
     Indication: Diffuse large B-cell lymphoma
     Route: 065
     Dates: start: 20220104, end: 20220131
  9. POLATUZUMAB VEDOTIN [Suspect]
     Active Substance: POLATUZUMAB VEDOTIN
     Indication: Diffuse large B-cell lymphoma
     Dosage: 3 LINE POLA-BR
     Route: 065
     Dates: start: 20220406, end: 20220427
  10. BENDAMUSTINE [Suspect]
     Active Substance: BENDAMUSTINE
     Indication: Diffuse large B-cell lymphoma
     Dosage: 3 LINE POLA-BR
     Route: 065
     Dates: start: 20220406, end: 20220427
  11. YESCARTA [Suspect]
     Active Substance: AXICABTAGENE CILOLEUCEL
     Indication: Diffuse large B-cell lymphoma
     Dosage: 4 LINE FLU/CY/YESCARTA (CAR-T)
     Route: 065
     Dates: start: 20220518, end: 20220523
  12. REVLIMID [Suspect]
     Active Substance: LENALIDOMIDE
     Indication: Diffuse large B-cell lymphoma
     Dosage: 5 LINE RITUXIMAB+REVLIMID +/- BRENTUXIMAB
     Route: 065
     Dates: start: 20221130, end: 20221207
  13. BRENTUXIMAB [Suspect]
     Active Substance: BRENTUXIMAB
     Indication: Diffuse large B-cell lymphoma
     Dosage: 5 LINE RITUXIMAB+REVLIMID +/- BRENTUXIMAB
     Route: 065
     Dates: start: 20221130, end: 20221207

REACTIONS (1)
  - Disease progression [Unknown]
